FAERS Safety Report 8199674-1 (Version None)
Quarter: 2012Q1

REPORT INFORMATION
  Report Type: 
  Country: None (occurrence: None)
  Receive Date: 20120311
  Receipt Date: 20120301
  Transmission Date: 20120608
  Serious: Yes (Other)
  Sender: FDA-Public Use
  Company Number: US-ASTRAZENECA-2012SE14819

PATIENT
  Age: 45 Year
  Sex: Female

DRUGS (1)
  1. CRESTOR [Suspect]
     Route: 048

REACTIONS (3)
  - DRUG DOSE OMISSION [None]
  - VIITH NERVE PARALYSIS [None]
  - ANGIOPATHY [None]
